FAERS Safety Report 7632123-8 (Version None)
Quarter: 2011Q3

REPORT INFORMATION
  Report Type: 
  Country: None (occurrence: None)
  Receive Date: 20110725
  Receipt Date: 20110725
  Transmission Date: 20111222
  Serious: Yes (Other)
  Sender: FDA-Public Use
  Company Number: None

PATIENT
  Sex: Male
  Weight: 36.287 kg

DRUGS (1)
  1. SINGULAIR [Suspect]
     Indication: HYPERSENSITIVITY
     Dosage: 5
     Route: 048
     Dates: start: 20110420, end: 20110520

REACTIONS (3)
  - HEAD TITUBATION [None]
  - DYSPHEMIA [None]
  - TIC [None]
